FAERS Safety Report 9634386 (Version 3)
Quarter: 2013Q4

REPORT INFORMATION
  Report Type: Spontaneous
  Country: SI (occurrence: SI)
  Receive Date: 20131021
  Receipt Date: 20131106
  Transmission Date: 20140711
  Serious: Yes (Hospitalization)
  Sender: FDA-Public Use
  Company Number: SI-JNJFOC-20131009352

PATIENT
  Age: 71 Year
  Sex: Female

DRUGS (8)
  1. XARELTO [Suspect]
     Indication: EMBOLISM VENOUS
     Route: 048
     Dates: start: 20130319, end: 20131011
  2. XARELTO [Suspect]
     Indication: DEEP VEIN THROMBOSIS
     Route: 048
     Dates: start: 20130319, end: 20131011
  3. ZALDIAR [Concomitant]
     Route: 048
  4. RAMIPRIL [Concomitant]
     Route: 065
  5. HYGROTON [Concomitant]
     Route: 065
  6. ESOMEPRAZOLE [Concomitant]
     Route: 065
  7. ELTROMBOPAG [Concomitant]
     Route: 065
  8. CALCIUM CARBONATE [Concomitant]
     Route: 065

REACTIONS (1)
  - Pulmonary embolism [Unknown]
